FAERS Safety Report 12473139 (Version 1)
Quarter: 2016Q2

REPORT INFORMATION
  Report Type: Spontaneous
  Country: PL (occurrence: PL)
  Receive Date: 20160616
  Receipt Date: 20160616
  Transmission Date: 20160815
  Serious: Yes (Other)
  Sender: FDA-Public Use
  Company Number: PL-FRESENIUS KABI-FK201603644

PATIENT
  Age: 36 Year
  Sex: Female

DRUGS (6)
  1. OXALIPLATIN (MANUFACTURER UNKNOWN) [Suspect]
     Active Substance: OXALIPLATIN
     Indication: SOLID PSEUDOPAPILLARY TUMOUR OF THE PANCREAS
     Route: 042
     Dates: start: 201211, end: 201403
  2. FLUOROURACIL (MANUFACTURER UNKNOWN) [Suspect]
     Active Substance: FLUOROURACIL
     Indication: SOLID PSEUDOPAPILLARY TUMOUR OF THE PANCREAS
     Route: 040
     Dates: start: 201211, end: 201403
  3. LEUCOVORIN CALCIUM (MANUFACTURER UNKNOWN) [Suspect]
     Active Substance: LEUCOVORIN CALCIUM
     Indication: METASTASES TO LIVER
  4. OXALIPLATIN (MANUFACTURER UNKNOWN) [Suspect]
     Active Substance: OXALIPLATIN
     Indication: METASTASES TO LIVER
  5. LEUCOVORIN CALCIUM (MANUFACTURER UNKNOWN) [Suspect]
     Active Substance: LEUCOVORIN CALCIUM
     Indication: SOLID PSEUDOPAPILLARY TUMOUR OF THE PANCREAS
     Route: 042
     Dates: start: 201211, end: 201403
  6. FLUOROURACIL (MANUFACTURER UNKNOWN) [Suspect]
     Active Substance: FLUOROURACIL
     Indication: METASTASES TO LIVER
     Route: 040
     Dates: start: 201211, end: 201403

REACTIONS (3)
  - Chills [Recovered/Resolved]
  - Musculoskeletal pain [Recovered/Resolved]
  - Formication [Recovered/Resolved]
